FAERS Safety Report 5904069-4 (Version None)
Quarter: 2008Q3

REPORT INFORMATION
  Report Type: 
  Country: None (occurrence: None)
  Receive Date: 20080930
  Receipt Date: 20080924
  Transmission Date: 20090109
  Serious: Yes (Hospitalization)
  Sender: FDA-Public Use
  Company Number: GB-ALLERGAN-0811179US

PATIENT
  Sex: Male
  Weight: 63 kg

DRUGS (5)
  1. BOTULINUM TOXIN TYPE A [Suspect]
     Indication: MUSCLE SPASTICITY
     Dosage: 200 UNITS, SINGLE
     Route: 030
     Dates: start: 20080507, end: 20080507
  2. OXYCONTIN [Concomitant]
     Dosage: 10 MG, BID
  3. GABAPENTIN [Concomitant]
     Dosage: 300 MG, BID
  4. RAMIPRIL [Concomitant]
     Dosage: 2.5 MG, BID
  5. BACLOFEN [Concomitant]
     Dosage: 10 MG, TID

REACTIONS (1)
  - LIMB INJURY [None]
